FAERS Safety Report 6477458-X (Version None)
Quarter: 2009Q4

REPORT INFORMATION
  Report Type: 
  Country: None (occurrence: None)
  Receive Date: 20091207
  Receipt Date: 20091123
  Transmission Date: 20100525
  Serious: Yes (Death)
  Sender: FDA-Public Use
  Company Number: CN-SANOFI-AVENTIS-2009SA001451

PATIENT
  Age: 66 Year
  Sex: Male
  Weight: 50.5 kg

DRUGS (6)
  1. DOCETAXEL [Suspect]
     Indication: GASTRIC CANCER
     Route: 041
     Dates: start: 20090219, end: 20091028
  2. CISPLATIN [Suspect]
     Indication: GASTRIC CANCER
     Route: 041
     Dates: start: 20090219, end: 20091028
  3. FLUOROURACIL [Suspect]
     Indication: GASTRIC CANCER
     Dates: start: 20090219, end: 20091102
  4. NEUPOGEN [Concomitant]
     Dates: start: 20091104, end: 20091106
  5. METOCLOPRAMIDE [Concomitant]
     Route: 048
     Dates: start: 20091029, end: 20091106
  6. RABEPRAZOLE [Concomitant]
     Indication: ANTACID THERAPY
     Route: 048
     Dates: start: 20091102, end: 20091106

REACTIONS (1)
  - SUDDEN DEATH [None]
